FAERS Safety Report 15281637 (Version 2)
Quarter: 2018Q4

REPORT INFORMATION
  Report Type: Report from Study
  Country: US (occurrence: US)
  Receive Date: 20180815
  Receipt Date: 20181031
  Transmission Date: 20190204
  Serious: Yes (Other)
  Sender: FDA-Public Use
  Company Number: US-BAUSCH-BL-2018-022456

PATIENT
  Sex: Male
  Weight: 86.71 kg

DRUGS (4)
  1. XIFAXAN [Suspect]
     Active Substance: RIFAXIMIN
     Indication: HEPATIC ENCEPHALOPATHY
     Dosage: PRESCRIBED WAS TWICE DAILY
     Route: 048
     Dates: start: 201608, end: 2018
  2. XIFAXAN [Suspect]
     Active Substance: RIFAXIMIN
     Dosage: AROUND THE END OF JUN/2018 OR EARLY JUL/2018, THE PATIENT WAS OUT OF XIFAXAN
     Route: 048
     Dates: start: 2018
  3. EPLERENONE. [Concomitant]
     Active Substance: EPLERENONE
     Indication: PRODUCT USED FOR UNKNOWN INDICATION
  4. FUROSEMIDE. [Concomitant]
     Active Substance: FUROSEMIDE
     Indication: PRODUCT USED FOR UNKNOWN INDICATION

REACTIONS (5)
  - Intentional product use issue [Unknown]
  - Therapy cessation [Recovered/Resolved]
  - Ammonia increased [Recovered/Resolved]
  - Product availability issue [Recovered/Resolved]
  - Irritability [Unknown]

NARRATIVE: CASE EVENT DATE: 2018
